FAERS Safety Report 4693456-0 (Version None)
Quarter: 2005Q2

REPORT INFORMATION
  Report Type: 
  Country: None (occurrence: None)
  Receive Date: 20050617
  Receipt Date: 20050608
  Transmission Date: 20051028
  Serious: Yes (Hospitalization)
  Sender: FDA-Public Use
  Company Number: PHNU2005DE02179

PATIENT
  Sex: Male

DRUGS (6)
  1. SANDIMMUNE [Suspect]
     Indication: RENAL TRANSPLANT
     Dates: start: 19880101, end: 20000101
  2. DECORTIN [Concomitant]
  3. CELLCEPT [Concomitant]
  4. NORVASK [Concomitant]
  5. ACETYLSALICYLIC ACID SRT [Concomitant]
  6. DIURETICS [Concomitant]

REACTIONS (3)
  - AMPUTATION [None]
  - ARTERIOSCLEROSIS [None]
  - CALCIPHYLAXIS [None]
